FAERS Safety Report 7918923-5 (Version None)
Quarter: 2011Q4

REPORT INFORMATION
  Report Type: 
  Country: None (occurrence: None)
  Receive Date: 20111116
  Receipt Date: 20111108
  Transmission Date: 20120403
  Serious: Yes (Other)
  Sender: FDA-Public Use
  Company Number: US-PFIZER INC-2011169985

PATIENT
  Sex: Female
  Weight: 123.99 kg

DRUGS (16)
  1. MULTIVITAMIN ^LAPPE^ [Concomitant]
     Indication: PROPHYLAXIS
     Dosage: UNK
     Dates: start: 20080131
  2. LETROZOLE [Concomitant]
     Indication: BREAST CANCER
     Dosage: UNK
     Dates: start: 20100217
  3. LEKOVIT CA [Concomitant]
     Indication: PROPHYLAXIS
     Dosage: UNK
     Dates: start: 20080529
  4. OXYMETAZOLINE HYDROCHLORIDE [Concomitant]
     Indication: UPPER RESPIRATORY TRACT INFECTION
  5. ACETYLSALICYLIC ACID [Concomitant]
     Indication: PROPHYLAXIS
     Dosage: UNK
     Dates: start: 20100217
  6. IMODIUM [Concomitant]
     Indication: DIARRHOEA
     Dosage: UNK
  7. TRILIPIX [Suspect]
     Dosage: 135 MG, 1X/DAY
     Dates: start: 20110525
  8. LIPITOR [Suspect]
     Indication: HYPERTRIGLYCERIDAEMIA
     Dosage: 20 MG, DAILY AT BEDTIME
     Dates: start: 20100318, end: 20110421
  9. ALUDROX [Concomitant]
     Indication: HYPOMAGNESAEMIA
     Dosage: UNK
     Dates: start: 20070412
  10. INSULIN GLARGINE [Concomitant]
     Indication: DIABETES MELLITUS
     Dosage: UNK
     Dates: start: 20100217
  11. TRILIPIX [Suspect]
     Indication: HYPERTRIGLYCERIDAEMIA
     Dosage: 135 MG, DAILY AT BEDTIME
     Route: 065
     Dates: start: 20100318, end: 20110421
  12. B KOMPLEX [Concomitant]
     Indication: PROPHYLAXIS
     Dosage: UNK
     Dates: start: 20110401
  13. OXYMETAZOLINE HYDROCHLORIDE [Concomitant]
     Indication: HYPERSENSITIVITY
     Dosage: UNK
     Dates: start: 20101107
  14. NERATINIB [Suspect]
     Dosage: BLINDED (240MG, 1 IN 1 D)
     Route: 048
     Dates: start: 20100217, end: 20110212
  15. GLIBOMET [Concomitant]
     Indication: DIABETES MELLITUS
     Dosage: UNK
     Dates: start: 20051003
  16. ERGOCALCIFEROL [Concomitant]
     Indication: PROPHYLAXIS
     Dosage: UNK
     Dates: start: 20100806

REACTIONS (4)
  - TREATMENT NONCOMPLIANCE [None]
  - HYPERTRIGLYCERIDAEMIA [None]
  - UPPER RESPIRATORY TRACT INFECTION [None]
  - DRUG DOSE OMISSION [None]
